FAERS Safety Report 21104383 (Version 1)
Quarter: 2022Q3

REPORT INFORMATION
  Report Type: Spontaneous
  Country: FR (occurrence: FR)
  Receive Date: 20220720
  Receipt Date: 20220720
  Transmission Date: 20221027
  Serious: Yes (Death)
  Sender: FDA-Public Use
  Company Number: None

PATIENT
  Age: 99 Year
  Sex: Female

DRUGS (1)
  1. ARIXTRA [Suspect]
     Active Substance: FONDAPARINUX SODIUM
     Indication: Deep vein thrombosis
     Dosage: 5 MILLIGRAM, QD
     Route: 058
     Dates: start: 20220104, end: 20220114

REACTIONS (2)
  - Anaemia [Fatal]
  - Subcutaneous haematoma [Fatal]

NARRATIVE: CASE EVENT DATE: 20220113
